FAERS Safety Report 20016709 (Version 1)
Quarter: 2021Q4

REPORT INFORMATION
  Report Type: Spontaneous
  Country: US (occurrence: None)
  Receive Date: 20211104
  Receipt Date: 20211104
  Transmission Date: 20220303
  Serious: Yes (Death)
  Sender: FDA-Public Use
  Company Number: None

PATIENT
  Age: 67 Year
  Sex: Female

DRUGS (1)
  1. ENBREL [Suspect]
     Active Substance: ETANERCEPT
     Indication: Pyoderma gangrenosum
     Dosage: OTHER FREQUENCY : 2X PER WK, 72-92H;?
     Route: 058
     Dates: start: 202106

REACTIONS (1)
  - Death [None]
